FAERS Safety Report 4645487-4 (Version None)
Quarter: 2005Q2

REPORT INFORMATION
  Report Type: 
  Country: None (occurrence: None)
  Receive Date: 20050426
  Receipt Date: 20050126
  Transmission Date: 20051028
  Serious: Yes (Life-Threatening, Hospitalization)
  Sender: FDA-Public Use
  Company Number: PL-MERCK-0501POL00011

PATIENT
  Age: 67 Year
  Sex: Female
  Weight: 64 kg

DRUGS (4)
  1. ZOCOR [Suspect]
     Indication: HYPERLIPIDAEMIA
     Route: 048
     Dates: start: 19950101, end: 20041001
  2. VERAPAMIL HYDROCHLORIDE [Concomitant]
     Indication: HYPOTENSION
     Route: 048
  3. TRANDOLAPRIL [Concomitant]
     Indication: HYPERTENSION
     Route: 065
     Dates: end: 20041008
  4. PIRACETAM [Concomitant]
     Indication: ANEURYSMECTOMY
     Route: 048
     Dates: end: 20041008

REACTIONS (3)
  - ENCEPHALOPATHY [None]
  - HEPATIC CIRRHOSIS [None]
  - SJOGREN'S SYNDROME [None]
